FAERS Safety Report 25588276 (Version 1)
Quarter: 2025Q3

REPORT INFORMATION
  Report Type: Spontaneous
  Country: EU (occurrence: EU)
  Receive Date: 20250722
  Receipt Date: 20250722
  Transmission Date: 20251021
  Serious: Yes (Life-Threatening)
  Sender: NOVARTIS
  Company Number: None

PATIENT
  Age: 72 Year
  Sex: Female

DRUGS (5)
  1. RIBOCICLIB [Suspect]
     Active Substance: RIBOCICLIB
     Indication: Breast cancer stage IV
     Dosage: 600 MG, QD
     Route: 048
     Dates: start: 202412, end: 20250711
  2. LETROZOLE [Concomitant]
     Active Substance: LETROZOLE
     Indication: Breast neoplasm
     Dosage: 2.5 MG, QD
     Route: 048
     Dates: start: 2024
  3. ATACAND [Concomitant]
     Active Substance: CANDESARTAN CILEXETIL
     Indication: Hypertension
     Dosage: 4 MG, QD
     Route: 048
     Dates: start: 2018
  4. Diurex [Concomitant]
     Indication: Hypertension
     Route: 048
     Dates: start: 2018
  5. DENOSUMAB [Concomitant]
     Active Substance: DENOSUMAB
     Indication: Metastases to bone
     Route: 058
     Dates: start: 2024

REACTIONS (1)
  - Hypersensitivity [Not Recovered/Not Resolved]

NARRATIVE: CASE EVENT DATE: 20250628
